FAERS Safety Report 17951999 (Version 1)
Quarter: 2020Q2

REPORT INFORMATION
  Report Type: Spontaneous
  Country: DK (occurrence: DK)
  Receive Date: 20200626
  Receipt Date: 20200626
  Transmission Date: 20200714
  Serious: Yes (Other)
  Sender: FDA-Public Use
  Company Number: DK-009507513-2006DNK008954

PATIENT
  Age: 87 Year
  Sex: Female
  Weight: 57.6 kg

DRUGS (1)
  1. MIRTAZAPINE. [Suspect]
     Active Substance: MIRTAZAPINE
     Indication: DEPRESSION
     Dosage: STRENGTH: 15 MG; 45 MILLIGRAM, QD
     Route: 048
     Dates: start: 20190215

REACTIONS (2)
  - Glomerular filtration rate decreased [Recovering/Resolving]
  - Renal impairment [Recovering/Resolving]

NARRATIVE: CASE EVENT DATE: 20200222
